FAERS Safety Report 4477253-7 (Version None)
Quarter: 2004Q4

REPORT INFORMATION
  Report Type: 
  Country: None (occurrence: None)
  Receive Date: 20041018
  Receipt Date: 20031114
  Transmission Date: 20050328
  Serious: No
  Sender: FDA-Public Use
  Company Number: US-GLAXOSMITHKLINE-A0439805A

PATIENT
  Age: 35 Year
  Sex: Female

DRUGS (1)
  1. CEFTIN [Suspect]
     Route: 048
     Dates: start: 19930101, end: 19930101

REACTIONS (2)
  - HEART RATE INCREASED [None]
  - RASH [None]
